FAERS Safety Report 12313501 (Version 1)
Quarter: 2016Q2

REPORT INFORMATION
  Report Type: Spontaneous
  Country: US (occurrence: None)
  Receive Date: 20160427
  Receipt Date: 20160427
  Transmission Date: 20160815
  Serious: Yes (Disabling)
  Sender: FDA-Public Use
  Company Number: None

PATIENT
  Age: 51 Year
  Sex: Female
  Weight: 120.2 kg

DRUGS (21)
  1. LEVAQUIN [Suspect]
     Active Substance: LEVOFLOXACIN
     Indication: INFECTION
     Route: 048
     Dates: start: 20090317
  2. LEVAQUIN [Suspect]
     Active Substance: LEVOFLOXACIN
     Indication: SINUS DISORDER
     Route: 048
     Dates: start: 20090317
  3. LEVOFLOXACIN 250MG TABLETS [Suspect]
     Active Substance: LEVOFLOXACIN
     Route: 048
     Dates: end: 20141128
  4. FLUOXETINE [Concomitant]
     Active Substance: FLUOXETINE HYDROCHLORIDE
  5. NUCYNTA [Concomitant]
     Active Substance: TAPENTADOL HYDROCHLORIDE
  6. TRAMADOL. [Concomitant]
     Active Substance: TRAMADOL
  7. OMEPRAZOLE. [Concomitant]
     Active Substance: OMEPRAZOLE
  8. CALCIUM [Concomitant]
     Active Substance: CALCIUM
  9. VITAMIN D [Concomitant]
     Active Substance: CHOLECALCIFEROL
  10. IBUPROFEN. [Concomitant]
     Active Substance: IBUPROFEN
  11. CLONAZEPAM. [Concomitant]
     Active Substance: CLONAZEPAM
  12. LORATADINE. [Concomitant]
     Active Substance: LORATADINE
  13. BAYER ASPIRIN [Concomitant]
     Active Substance: ASPIRIN
  14. ZANTAC [Concomitant]
     Active Substance: RANITIDINE HYDROCHLORIDE
  15. VITAMIN C [Concomitant]
     Active Substance: ASCORBIC ACID
  16. FISH OIL [Concomitant]
     Active Substance: FISH OIL
  17. ADVIL [Concomitant]
     Active Substance: IBUPROFEN
  18. FLONASE [Concomitant]
     Active Substance: FLUTICASONE PROPIONATE
  19. LEVAQUIN [Suspect]
     Active Substance: LEVOFLOXACIN
     Indication: PULMONARY CONGESTION
     Route: 048
     Dates: start: 20090317
  20. LEVAQUIN [Suspect]
     Active Substance: LEVOFLOXACIN
     Indication: NASOPHARYNGITIS
     Route: 048
     Dates: start: 20090317
  21. PROAIR HFA [Concomitant]
     Active Substance: ALBUTEROL SULFATE

REACTIONS (10)
  - Arthropathy [None]
  - Incorrect drug administration duration [None]
  - Joint crepitation [None]
  - Pain in extremity [None]
  - Grip strength decreased [None]
  - Impaired work ability [None]
  - Arthralgia [None]
  - Angiopathy [None]
  - Feeling abnormal [None]
  - Headache [None]

NARRATIVE: CASE EVENT DATE: 20090317
